FAERS Safety Report 10010840 (Version 2)
Quarter: 2014Q2

REPORT INFORMATION
  Report Type: Spontaneous
  Country: US (occurrence: US)
  Receive Date: 20140314
  Receipt Date: 20140403
  Transmission Date: 20141212
  Serious: Yes (Hospitalization)
  Sender: FDA-Public Use
  Company Number: US-CELGENEUS-163-21880-14030331

PATIENT
  Age: 75 Year
  Sex: Male

DRUGS (5)
  1. REVLIMID [Suspect]
     Indication: MYELODYSPLASTIC SYNDROME
     Dosage: 5 MILLIGRAM
     Route: 048
     Dates: start: 20140106
  2. REVLIMID [Suspect]
     Dosage: 5 MILLIGRAM
     Route: 048
     Dates: start: 20140324
  3. ACYCLOVIR [Concomitant]
     Indication: INFECTION
     Dosage: 800 MILLIGRAM
     Route: 048
     Dates: start: 20140313
  4. PLAVIX [Concomitant]
     Indication: CARDIAC DISORDER
     Dosage: 75 MILLIGRAM
     Route: 048
     Dates: start: 20140313
  5. CARDIZEM [Concomitant]
     Indication: CARDIAC DISORDER
     Dosage: 240 MILLIGRAM
     Route: 065

REACTIONS (1)
  - Peripheral vascular disorder [Recovering/Resolving]
